FAERS Safety Report 6349357-5 (Version None)
Quarter: 2009Q3

REPORT INFORMATION
  Report Type: 
  Country: None (occurrence: None)
  Receive Date: 20090911
  Receipt Date: 20090831
  Transmission Date: 20100115
  Serious: Yes (Hospitalization, Other)
  Sender: FDA-Public Use
  Company Number: CA-ELI_LILLY_AND_COMPANY-CA200909000196

PATIENT
  Sex: Male

DRUGS (3)
  1. PEMETREXED [Suspect]
     Indication: NON-SMALL CELL LUNG CANCER
     Dosage: 689 MG, OTHER
     Route: 042
     Dates: start: 20090521
  2. CISPLATIN [Suspect]
     Indication: NON-SMALL CELL LUNG CANCER
     Dosage: 86 MG, OTHER
     Route: 042
     Dates: start: 20090521
  3. SUNITINIB MALATE [Suspect]
     Indication: NON-SMALL CELL LUNG CANCER
     Dosage: 25 MG, DAILY (1/D)
     Route: 048
     Dates: start: 20090522, end: 20090101

REACTIONS (1)
  - GENERAL PHYSICAL HEALTH DETERIORATION [None]
